FAERS Safety Report 5151599-1 (Version None)
Quarter: 2006Q4

REPORT INFORMATION
  Report Type: 
  Country: None (occurrence: None)
  Receive Date: 20061115
  Receipt Date: 20060207
  Transmission Date: 20070319
  Serious: Yes (Other)
  Sender: FDA-Public Use
  Company Number: US-BRISTOL-MYERS SQUIBB COMPANY-13274758

PATIENT
  Sex: Male

DRUGS (1)
  1. SUSTIVA [Suspect]
     Indication: HIV INFECTION
     Route: 048

REACTIONS (1)
  - CONVULSION [None]
